FAERS Safety Report 6887065-2 (Version None)
Quarter: 2010Q3

REPORT INFORMATION
  Report Type: 
  Country: None (occurrence: None)
  Receive Date: 20100730
  Receipt Date: 20100719
  Transmission Date: 20110219
  Serious: Yes (Other)
  Sender: FDA-Public Use
  Company Number: GB-BRISTOL-MYERS SQUIBB COMPANY-15204514

PATIENT
  Age: 69 Year
  Sex: Male
  Weight: 96 kg

DRUGS (6)
  1. DAPAGLIFLOZIN [Suspect]
     Indication: TYPE 2 DIABETES MELLITUS
     Route: 048
     Dates: start: 20080715
  2. GLIPIZIDE [Suspect]
     Indication: TYPE 2 DIABETES MELLITUS
     Route: 048
     Dates: start: 20080715
  3. PLACEBO [Suspect]
     Indication: TYPE 2 DIABETES MELLITUS
     Route: 048
     Dates: start: 20080715
  4. METFORMIN HCL [Suspect]
     Indication: TYPE 2 DIABETES MELLITUS
     Dosage: OPEN LABEL SINCE 06-MAY-2008.
     Route: 048
     Dates: start: 20080506
  5. SIMVASTATIN [Concomitant]
     Indication: PROPHYLAXIS
     Route: 048
  6. PRILOSEC [Concomitant]
     Indication: GASTRIC ULCER
     Route: 048

REACTIONS (1)
  - CALCULUS BLADDER [None]
